FAERS Safety Report 20745473 (Version 5)
Quarter: 2025Q1

REPORT INFORMATION
  Report Type: Spontaneous
  Country: ES (occurrence: ES)
  Receive Date: 20220425
  Receipt Date: 20250228
  Transmission Date: 20250408
  Serious: Yes (Life-Threatening, Hospitalization, Other)
  Sender: MYLAN
  Company Number: None

PATIENT
  Age: 21 Year
  Sex: Male
  Weight: 63 kg

DRUGS (56)
  1. ACETAMINOPHEN [Suspect]
     Active Substance: ACETAMINOPHEN
     Indication: Product used for unknown indication
     Route: 048
     Dates: start: 20220325, end: 20220325
  2. ACETAMINOPHEN [Suspect]
     Active Substance: ACETAMINOPHEN
     Dates: start: 20220325, end: 20220325
  3. ACETAMINOPHEN [Suspect]
     Active Substance: ACETAMINOPHEN
     Dates: start: 20220325, end: 20220325
  4. ACETAMINOPHEN [Suspect]
     Active Substance: ACETAMINOPHEN
     Route: 048
     Dates: start: 20220325, end: 20220325
  5. ACETAMINOPHEN [Suspect]
     Active Substance: ACETAMINOPHEN
     Route: 065
     Dates: start: 20220325, end: 20220325
  6. ACETAMINOPHEN [Suspect]
     Active Substance: ACETAMINOPHEN
     Dates: start: 20220325, end: 20220325
  7. ACETAMINOPHEN [Suspect]
     Active Substance: ACETAMINOPHEN
     Dates: start: 20220325, end: 20220325
  8. ACETAMINOPHEN [Suspect]
     Active Substance: ACETAMINOPHEN
     Route: 065
     Dates: start: 20220325, end: 20220325
  9. DESLORATADINE [Suspect]
     Active Substance: DESLORATADINE
     Indication: Product used for unknown indication
     Route: 048
     Dates: start: 20220325, end: 20220325
  10. DESLORATADINE [Suspect]
     Active Substance: DESLORATADINE
     Dates: start: 20220325, end: 20220325
  11. DESLORATADINE [Suspect]
     Active Substance: DESLORATADINE
     Dates: start: 20220325, end: 20220325
  12. DESLORATADINE [Suspect]
     Active Substance: DESLORATADINE
     Route: 048
     Dates: start: 20220325, end: 20220325
  13. DESLORATADINE [Suspect]
     Active Substance: DESLORATADINE
     Route: 065
     Dates: start: 20220325, end: 20220325
  14. DESLORATADINE [Suspect]
     Active Substance: DESLORATADINE
     Dates: start: 20220325, end: 20220325
  15. DESLORATADINE [Suspect]
     Active Substance: DESLORATADINE
     Dates: start: 20220325, end: 20220325
  16. DESLORATADINE [Suspect]
     Active Substance: DESLORATADINE
     Route: 065
     Dates: start: 20220325, end: 20220325
  17. IBUPROFEN [Suspect]
     Active Substance: IBUPROFEN
     Indication: Product used for unknown indication
     Route: 048
     Dates: start: 20220325, end: 20220325
  18. IBUPROFEN [Suspect]
     Active Substance: IBUPROFEN
     Dates: start: 20220325, end: 20220325
  19. IBUPROFEN [Suspect]
     Active Substance: IBUPROFEN
     Dates: start: 20220325, end: 20220325
  20. IBUPROFEN [Suspect]
     Active Substance: IBUPROFEN
     Route: 048
     Dates: start: 20220325, end: 20220325
  21. IBUPROFEN [Suspect]
     Active Substance: IBUPROFEN
     Route: 065
     Dates: start: 20220325, end: 20220325
  22. IBUPROFEN [Suspect]
     Active Substance: IBUPROFEN
     Dates: start: 20220325, end: 20220325
  23. IBUPROFEN [Suspect]
     Active Substance: IBUPROFEN
     Dates: start: 20220325, end: 20220325
  24. IBUPROFEN [Suspect]
     Active Substance: IBUPROFEN
     Route: 065
     Dates: start: 20220325, end: 20220325
  25. OMEPRAZOLE [Suspect]
     Active Substance: OMEPRAZOLE
     Indication: Product used for unknown indication
     Route: 048
     Dates: start: 20220325, end: 20220325
  26. OMEPRAZOLE [Suspect]
     Active Substance: OMEPRAZOLE
     Dates: start: 20220325, end: 20220325
  27. OMEPRAZOLE [Suspect]
     Active Substance: OMEPRAZOLE
     Dates: start: 20220325, end: 20220325
  28. OMEPRAZOLE [Suspect]
     Active Substance: OMEPRAZOLE
     Route: 048
     Dates: start: 20220325, end: 20220325
  29. OMEPRAZOLE [Suspect]
     Active Substance: OMEPRAZOLE
     Route: 065
     Dates: start: 20220325, end: 20220325
  30. OMEPRAZOLE [Suspect]
     Active Substance: OMEPRAZOLE
     Dates: start: 20220325, end: 20220325
  31. OMEPRAZOLE [Suspect]
     Active Substance: OMEPRAZOLE
     Dates: start: 20220325, end: 20220325
  32. OMEPRAZOLE [Suspect]
     Active Substance: OMEPRAZOLE
     Route: 065
     Dates: start: 20220325, end: 20220325
  33. PREDNISONE [Suspect]
     Active Substance: PREDNISONE
     Indication: Product used for unknown indication
     Route: 048
     Dates: start: 20220325, end: 20220325
  34. PREDNISONE [Suspect]
     Active Substance: PREDNISONE
     Dates: start: 20220325, end: 20220325
  35. PREDNISONE [Suspect]
     Active Substance: PREDNISONE
     Dates: start: 20220325, end: 20220325
  36. PREDNISONE [Suspect]
     Active Substance: PREDNISONE
     Route: 048
     Dates: start: 20220325, end: 20220325
  37. PREDNISONE [Suspect]
     Active Substance: PREDNISONE
     Route: 065
     Dates: start: 20220325, end: 20220325
  38. PREDNISONE [Suspect]
     Active Substance: PREDNISONE
     Dates: start: 20220325, end: 20220325
  39. PREDNISONE [Suspect]
     Active Substance: PREDNISONE
     Dates: start: 20220325, end: 20220325
  40. PREDNISONE [Suspect]
     Active Substance: PREDNISONE
     Route: 065
     Dates: start: 20220325, end: 20220325
  41. DOXYLAMINE [Suspect]
     Active Substance: DOXYLAMINE
     Indication: Product used for unknown indication
     Route: 048
     Dates: start: 20220325, end: 20220325
  42. DOXYLAMINE [Suspect]
     Active Substance: DOXYLAMINE
     Dates: start: 20220325, end: 20220325
  43. DOXYLAMINE [Suspect]
     Active Substance: DOXYLAMINE
     Dates: start: 20220325, end: 20220325
  44. DOXYLAMINE [Suspect]
     Active Substance: DOXYLAMINE
     Route: 048
     Dates: start: 20220325, end: 20220325
  45. DOXYLAMINE [Suspect]
     Active Substance: DOXYLAMINE
     Route: 065
     Dates: start: 20220325, end: 20220325
  46. DOXYLAMINE [Suspect]
     Active Substance: DOXYLAMINE
     Dates: start: 20220325, end: 20220325
  47. DOXYLAMINE [Suspect]
     Active Substance: DOXYLAMINE
     Dates: start: 20220325, end: 20220325
  48. DOXYLAMINE [Suspect]
     Active Substance: DOXYLAMINE
     Route: 065
     Dates: start: 20220325, end: 20220325
  49. DIAZEPAM [Suspect]
     Active Substance: DIAZEPAM
     Indication: Product used for unknown indication
     Route: 048
     Dates: start: 20220325, end: 20220325
  50. DIAZEPAM [Suspect]
     Active Substance: DIAZEPAM
     Dates: start: 20220325, end: 20220325
  51. DIAZEPAM [Suspect]
     Active Substance: DIAZEPAM
     Dates: start: 20220325, end: 20220325
  52. DIAZEPAM [Suspect]
     Active Substance: DIAZEPAM
     Route: 048
     Dates: start: 20220325, end: 20220325
  53. DIAZEPAM [Suspect]
     Active Substance: DIAZEPAM
     Route: 048
     Dates: start: 20220325, end: 20220325
  54. DIAZEPAM [Suspect]
     Active Substance: DIAZEPAM
     Dates: start: 20220325, end: 20220325
  55. DIAZEPAM [Suspect]
     Active Substance: DIAZEPAM
     Dates: start: 20220325, end: 20220325
  56. DIAZEPAM [Suspect]
     Active Substance: DIAZEPAM
     Route: 048
     Dates: start: 20220325, end: 20220325

REACTIONS (4)
  - Suicide attempt [Recovering/Resolving]
  - Depressed level of consciousness [Recovered/Resolved]
  - Accidental overdose [Unknown]
  - Overdose [Unknown]

NARRATIVE: CASE EVENT DATE: 20220325
